FAERS Safety Report 6884060-4 (Version None)
Quarter: 2010Q3

REPORT INFORMATION
  Report Type: 
  Country: None (occurrence: None)
  Receive Date: 20100729
  Receipt Date: 20100716
  Transmission Date: 20110219
  Serious: Yes (Hospitalization)
  Sender: FDA-Public Use
  Company Number: PHHY2010DE47065

PATIENT
  Sex: Male

DRUGS (1)
  1. ACLASTA [Suspect]
     Dosage: UNK
     Route: 042
     Dates: start: 20100518

REACTIONS (6)
  - BONE PAIN [None]
  - CHEST PAIN [None]
  - CHILLS [None]
  - HYPERHIDROSIS [None]
  - MOBILITY DECREASED [None]
  - PAIN IN EXTREMITY [None]
